FAERS Safety Report 5650657-2 (Version None)
Quarter: 2008Q1

REPORT INFORMATION
  Report Type: 
  Country: None (occurrence: None)
  Receive Date: 20080305
  Receipt Date: 20080225
  Transmission Date: 20080703
  Serious: Yes (Hospitalization, Other)
  Sender: FDA-Public Use
  Company Number: PHBS2007JP13371

PATIENT
  Age: 82 Year
  Sex: Male
  Weight: 54 kg

DRUGS (3)
  1. TEGRETOL [Suspect]
     Indication: CONVULSION
     Dosage: 200 MG, BID
     Route: 048
     Dates: end: 20070809
  2. LANSOPRAZOLE [Suspect]
     Indication: REFLUX OESOPHAGITIS
     Dosage: 30 MG/DAY
     Route: 048
     Dates: start: 20070517, end: 20070809
  3. CLARITHROMYCIN [Concomitant]
     Indication: EMPHYSEMA
     Dosage: 400 MG/DAY
     Route: 048
     Dates: start: 20050616

REACTIONS (10)
  - BRONCHIECTASIS [None]
  - BRONCHOALVEOLAR LAVAGE ABNORMAL [None]
  - C-REACTIVE PROTEIN INCREASED [None]
  - DYSPEPSIA [None]
  - DYSPNOEA EXERTIONAL [None]
  - EMPHYSEMA [None]
  - HIATUS HERNIA [None]
  - INTERSTITIAL LUNG DISEASE [None]
  - PNEUMONIA [None]
  - REFLUX OESOPHAGITIS [None]
